FAERS Safety Report 9205967 (Version 1)
Quarter: 2013Q1

REPORT INFORMATION
  Report Type: Spontaneous
  Country: US (occurrence: None)
  Receive Date: 20120709
  Receipt Date: 20120709
  Transmission Date: 20140127
  Serious: Yes (Other)
  Sender: FDA-Public Use
  Company Number: PHHY2011US42496

PATIENT
  Age: 61 Year
  Sex: Male

DRUGS (1)
  1. GLEEVEC [Suspect]
     Indication: ACUTE LYMPHOCYTIC LEUKAEMIA
     Dosage: 400AND800MG QD (ALTERN DOSES), ORAL
     Dates: start: 20110426

REACTIONS (7)
  - Acute lymphocytic leukaemia [None]
  - Neoplasm malignant [None]
  - Bone pain [None]
  - Arthralgia [None]
  - Muscle spasms [None]
  - Nausea [None]
  - Abdominal discomfort [None]
